FAERS Safety Report 20732120 (Version 3)
Quarter: 2022Q2

REPORT INFORMATION
  Report Type: Report from Study
  Country: US (occurrence: US)
  Receive Date: 20220420
  Receipt Date: 20220531
  Transmission Date: 20220720
  Serious: Yes (Hospitalization, Other)
  Sender: FDA-Public Use
  Company Number: US-TAKEDA-2022TUS026126

PATIENT
  Sex: Male
  Weight: 59 kg

DRUGS (1)
  1. MARIBAVIR [Suspect]
     Active Substance: MARIBAVIR
     Indication: Cytomegalovirus infection
     Dosage: 400 MILLIGRAM, BID
     Route: 048
     Dates: start: 20220330

REACTIONS (3)
  - Pneumonia [Not Recovered/Not Resolved]
  - Cardiac failure acute [Not Recovered/Not Resolved]
  - Fatigue [Unknown]
